FAERS Safety Report 5570762-9 (Version None)
Quarter: 2007Q4

REPORT INFORMATION
  Report Type: 
  Country: None (occurrence: None)
  Receive Date: 20071221
  Receipt Date: 20071217
  Transmission Date: 20080405
  Serious: Yes (Life-Threatening, Hospitalization)
  Sender: FDA-Public Use
  Company Number: US-WYE-H01826007

PATIENT
  Sex: Female

DRUGS (1)
  1. EFFEXOR XR [Suspect]
     Indication: MAJOR DEPRESSION
     Route: 048

REACTIONS (2)
  - ATRIAL FIBRILLATION [None]
  - DRUG WITHDRAWAL SYNDROME [None]
